FAERS Safety Report 6802040-1 (Version None)
Quarter: 2010Q2

REPORT INFORMATION
  Report Type: 
  Country: None (occurrence: None)
  Receive Date: 20100629
  Receipt Date: 20071024
  Transmission Date: 20101027
  Serious: Yes (Hospitalization, Other)
  Sender: FDA-Public Use
  Company Number: US-PFIZER INC-2006119565

PATIENT
  Sex: Male
  Weight: 63.5 kg

DRUGS (5)
  1. BEXTRA [Suspect]
     Indication: SPINAL CORD DISORDER
     Dosage: ONCE-TWICE DAILY
     Dates: start: 20021201
  2. CELEBREX [Suspect]
     Indication: SPINAL CORD DISORDER
     Dates: start: 20030301, end: 20030801
  3. VIOXX [Suspect]
     Indication: SPINAL CORD DISORDER
     Dosage: ONCE-TWICE DAILY
     Dates: start: 20021201
  4. LANOXIN [Concomitant]
     Indication: CARDIAC DISORDER
     Dates: start: 19950101
  5. ATENOLOL [Concomitant]
     Indication: CARDIAC DISORDER
     Dates: start: 19870101

REACTIONS (1)
  - MYOCARDIAL INFARCTION [None]
